FAERS Safety Report 5383151-7 (Version None)
Quarter: 2007Q3

REPORT INFORMATION
  Report Type: 
  Country: None (occurrence: None)
  Receive Date: 20070710
  Receipt Date: 20070629
  Transmission Date: 20080115
  Serious: Yes (Other)
  Sender: FDA-Public Use
  Company Number: JP-ASTRAZENECA-2007AP03450

PATIENT
  Age: 52 Year
  Sex: Female
  Weight: 43.7 kg

DRUGS (18)
  1. MEROPENEM [Suspect]
     Indication: NEUTROPHIL COUNT DECREASED
     Route: 041
     Dates: start: 20070415, end: 20070416
  2. ZOVIRAX [Suspect]
     Indication: HERPES ZOSTER
     Route: 048
     Dates: start: 20070405, end: 20070416
  3. NEUTROGIN [Suspect]
     Indication: STEM CELL TRANSPLANT
     Route: 041
     Dates: start: 20070407, end: 20070416
  4. MAXIPIME [Suspect]
     Indication: NEUTROPHIL COUNT DECREASED
     Route: 041
     Dates: start: 20070408, end: 20070415
  5. EXACIN INJECTION 400 [Suspect]
     Indication: NEUTROPHIL COUNT DECREASED
     Route: 041
     Dates: start: 20070408, end: 20070415
  6. TARGOCID [Suspect]
     Indication: NEUTROPHIL COUNT DECREASED
     Route: 041
     Dates: start: 20070415, end: 20070416
  7. BONALON TABLET [Concomitant]
     Indication: OSTEOPOROSIS
     Route: 048
     Dates: start: 20060101, end: 20070416
  8. ESTRIEL [Concomitant]
     Indication: OSTEOPOROSIS
     Route: 048
     Dates: start: 20060101, end: 20070416
  9. DIFLUCAN [Concomitant]
     Indication: PROPHYLAXIS
     Route: 048
     Dates: start: 20061201, end: 20070416
  10. MUCOSTA [Concomitant]
     Indication: GASTRITIS PROPHYLAXIS
     Route: 048
     Dates: start: 20061201, end: 20070416
  11. TAKEPRON [Concomitant]
     Indication: HYPERCHLORHYDRIA
     Route: 048
     Dates: start: 20061201, end: 20070416
  12. PANTOSIN [Concomitant]
     Indication: CONSTIPATION
     Dosage: 2/3 G THREE TIMES A DAY
     Route: 048
     Dates: start: 20061201, end: 20070416
  13. MAGNESIUM OXIDE [Concomitant]
     Indication: CONSTIPATION
     Dosage: 2/3 G THREE TIMES A DAY
     Route: 048
     Dates: start: 20061201, end: 20070416
  14. DEPAS [Concomitant]
     Indication: INSOMNIA
     Route: 048
     Dates: start: 20061201
  15. FULCALIQ NO.1 [Concomitant]
     Indication: PARENTERAL NUTRITION
     Route: 041
     Dates: start: 20070411, end: 20070420
  16. PLATELETS [Concomitant]
     Dates: start: 20070412, end: 20070412
  17. PLATELETS [Concomitant]
     Dates: start: 20070415, end: 20070415
  18. RBC CONCENTRATE TRANSFUSION [Concomitant]
     Dates: start: 20070413, end: 20070413

REACTIONS (1)
  - HEPATIC FUNCTION ABNORMAL [None]
